FAERS Safety Report 9045149 (Version 1)
Quarter: 2013Q1

REPORT INFORMATION
  Report Type: Report from Study
  Country: DE (occurrence: DE)
  Receive Date: 20130130
  Receipt Date: 20130130
  Transmission Date: 20140127
  Serious: Yes (Death)
  Sender: FDA-Public Use
  Company Number: DE-ABBOTT-13P-062-1041597-00

PATIENT
  Age: 51 None
  Sex: Male
  Weight: 74 kg

DRUGS (3)
  1. KALETRA [Suspect]
     Indication: HIV INFECTION
     Dates: start: 20110810
  2. TRUVADA [Concomitant]
     Indication: PRODUCT USED FOR UNKNOWN INDICATION
  3. ISENTRESS [Concomitant]
     Indication: PRODUCT USED FOR UNKNOWN INDICATION

REACTIONS (6)
  - Sepsis [Fatal]
  - Pneumonia fungal [Fatal]
  - Mycobacterial infection [Fatal]
  - Cytomegalovirus infection [Fatal]
  - Hyponatraemia [Fatal]
  - Decubitus ulcer [Fatal]
